FAERS Safety Report 13648787 (Version 2)
Quarter: 2017Q2

REPORT INFORMATION
  Report Type: Spontaneous
  Country: JP (occurrence: JP)
  Receive Date: 20170613
  Receipt Date: 20170628
  Transmission Date: 20170830
  Serious: Yes (Death, Life-Threatening, Hospitalization, Other)
  Sender: FDA-Public Use
  Company Number: JP-CELGENEUS-JPN-2017037930

PATIENT
  Age: 75 Year
  Sex: Male

DRUGS (2)
  1. REVLIMID [Suspect]
     Active Substance: LENALIDOMIDE
     Indication: PLASMA CELL MYELOMA
     Dosage: 25 MILLIGRAM
     Route: 048
     Dates: start: 20150305
  2. LENADEX [Suspect]
     Active Substance: DEXAMETHASONE ACETATE
     Indication: PLASMA CELL MYELOMA
     Dosage: 20 MILLIGRAM
     Route: 048
     Dates: start: 20150305

REACTIONS (6)
  - Atrial fibrillation [Fatal]
  - Plasma cell myeloma [Fatal]
  - Pneumonia legionella [Fatal]
  - Septic shock [Not Recovered/Not Resolved]
  - Pneumonia [Fatal]
  - Embolic stroke [Fatal]

NARRATIVE: CASE EVENT DATE: 20150703
